FAERS Safety Report 11499385 (Version 1)
Quarter: 2015Q3

REPORT INFORMATION
  Report Type: Spontaneous
  Country: US (occurrence: US)
  Receive Date: 20150914
  Receipt Date: 20150914
  Transmission Date: 20151125
  Serious: No
  Sender: FDA-Public Use
  Company Number: US-AMGEN-USASP2015094008

PATIENT
  Age: 34 Year
  Sex: Female

DRUGS (1)
  1. ENBREL [Suspect]
     Active Substance: ETANERCEPT
     Indication: RHEUMATOID ARTHRITIS
     Dosage: 50 MG, QWK (ONE TIME WEEKLY)
     Route: 065
     Dates: start: 2012

REACTIONS (4)
  - Unevaluable event [Unknown]
  - Immune system disorder [Unknown]
  - Depressed mood [Unknown]
  - Inappropriate schedule of drug administration [Unknown]
